FAERS Safety Report 5816349-1 (Version None)
Quarter: 2008Q3

REPORT INFORMATION
  Report Type: 
  Country: None (occurrence: None)
  Receive Date: 20080721
  Receipt Date: 20080122
  Transmission Date: 20090109
  Serious: No
  Sender: FDA-Public Use
  Company Number: US-BAUSCH-2008BL000276

PATIENT
  Age: 68 Year
  Sex: Female

DRUGS (3)
  1. OPCON-A [Suspect]
     Route: 047
     Dates: start: 20080122, end: 20080122
  2. ZYRTEC [Concomitant]
     Indication: SEASONAL ALLERGY
  3. PREMARIN [Concomitant]

REACTIONS (2)
  - ABNORMAL SENSATION IN EYE [None]
  - HEADACHE [None]
